FAERS Safety Report 9717088 (Version 3)
Quarter: 2015Q3

REPORT INFORMATION
  Report Type: Spontaneous
  Country: US (occurrence: US)
  Receive Date: 20131127
  Receipt Date: 20150804
  Transmission Date: 20151125
  Serious: No
  Sender: FDA-Public Use
  Company Number: US-GILEAD-2009-0020740

PATIENT
  Age: 67 Year
  Sex: Female

DRUGS (18)
  1. NORVASC [Concomitant]
     Active Substance: AMLODIPINE BESYLATE
  2. NEXIUM [Concomitant]
     Active Substance: ESOMEPRAZOLE MAGNESIUM
  3. LEVAQUIN [Concomitant]
     Active Substance: LEVOFLOXACIN
  4. VITAMIN C [Concomitant]
     Active Substance: ASCORBIC ACID
  5. QUESTRAN [Concomitant]
     Active Substance: CHOLESTYRAMINE
  6. GLUCOSAMINE [Concomitant]
     Active Substance: GLUCOSAMINE
  7. MULTIVITAMIN [Concomitant]
     Active Substance: VITAMINS
  8. REVATIO [Concomitant]
     Active Substance: SILDENAFIL CITRATE
  9. VANCOCIN [Concomitant]
     Active Substance: VANCOMYCIN HYDROCHLORIDE
  10. VITAMIN B-6 [Concomitant]
     Active Substance: PYRIDOXINE
  11. IRON [Concomitant]
     Active Substance: IRON
  12. VITAMIN D [Concomitant]
     Active Substance: CHOLECALCIFEROL
  13. LETAIRIS [Suspect]
     Active Substance: AMBRISENTAN
     Indication: PULMONARY ARTERIAL HYPERTENSION
     Route: 048
     Dates: start: 20070919
  14. ZYVOX [Concomitant]
     Active Substance: LINEZOLID
  15. SALAGEN [Concomitant]
     Active Substance: PILOCARPINE HYDROCHLORIDE
  16. BONIVA [Concomitant]
     Active Substance: IBANDRONATE SODIUM
  17. VITAMIN B12 [Concomitant]
     Active Substance: CYANOCOBALAMIN
  18. FISH OIL [Concomitant]
     Active Substance: FISH OIL

REACTIONS (2)
  - Epistaxis [Unknown]
  - Eye haemorrhage [Unknown]
